FAERS Safety Report 9376981 (Version 2)
Quarter: 2013Q3

REPORT INFORMATION
  Report Type: Spontaneous
  Country: JP (occurrence: JP)
  Receive Date: 20130701
  Receipt Date: 20130702
  Transmission Date: 20140515
  Serious: Yes (Other)
  Sender: FDA-Public Use
  Company Number: JP-BAYER-2013-075984

PATIENT
  Age: 32 Year
  Sex: Female

DRUGS (4)
  1. ADALAT CR [Suspect]
     Indication: GESTATIONAL HYPERTENSION
  2. NICARDIPINE HYDROCHLORIDE [Concomitant]
     Indication: BLOOD PRESSURE MANAGEMENT
     Dosage: UNK
  3. METHYLDOPA [Concomitant]
     Indication: HYPERTENSION
     Dosage: UNK
     Route: 048
  4. LABETALOL HYDROCHLORIDE [Concomitant]
     Indication: HYPERTENSION
     Dosage: UNK
     Route: 048

REACTIONS (3)
  - Umbilical cord abnormality [None]
  - Caesarean section [None]
  - Premature delivery [None]
